FAERS Safety Report 24540088 (Version 1)
Quarter: 2024Q4

REPORT INFORMATION
  Report Type: Spontaneous
  Country: US (occurrence: None)
  Receive Date: 20241023
  Receipt Date: 20241023
  Transmission Date: 20250115
  Serious: No
  Sender: Public
  Company Number: None

PATIENT
  Sex: Female

DRUGS (1)
  1. ILARIS [Suspect]
     Active Substance: CANAKINUMAB
     Indication: Still^s disease
     Dosage: FREQUENCY : EVERY OTHER WEEK;?
     Route: 058
     Dates: start: 202205

REACTIONS (7)
  - Hypersomnia [None]
  - Headache [None]
  - Loss of consciousness [None]
  - Concussion [None]
  - Head discomfort [None]
  - Hypoacusis [None]
  - Inflammation [None]
